FAERS Safety Report 4474748-7 (Version None)
Quarter: 2004Q4

REPORT INFORMATION
  Report Type: 
  Country: None (occurrence: None)
  Receive Date: 20041012
  Receipt Date: 20040928
  Transmission Date: 20050328
  Serious: Yes (Death)
  Sender: FDA-Public Use
  Company Number: MK200410-0040-1

PATIENT
  Age: 67 Year
  Sex: Female

DRUGS (7)
  1. ANFRANIL 25MG CAPSULES [Suspect]
  2. ZELITRAX [Suspect]
  3. ATARAX [Suspect]
  4. DOGMATIL [Suspect]
  5. TAHOR [Suspect]
  6. HAVLANE [Suspect]
  7. ALDACTACINE [Suspect]

REACTIONS (2)
  - HERPES ZOSTER [None]
  - VENTRICULAR TACHYCARDIA [None]
